FAERS Safety Report 6109202-X (Version None)
Quarter: 2009Q1

REPORT INFORMATION
  Report Type: 
  Country: None (occurrence: None)
  Receive Date: 20090310
  Receipt Date: 20090223
  Transmission Date: 20090719
  Serious: Yes (Hospitalization)
  Sender: FDA-Public Use
  Company Number: PHHY2009FR06788

PATIENT
  Sex: Female

DRUGS (10)
  1. COTAREG [Suspect]
     Indication: HYPERTENSION
     Dosage: 1 DF, QD
     Route: 048
     Dates: end: 20090101
  2. MOPRAL [Suspect]
     Dosage: 1 DF, QD
     Route: 048
     Dates: end: 20090101
  3. IPERTEN [Concomitant]
     Indication: HYPERTENSION
     Dosage: UNK
     Route: 048
     Dates: end: 20090101
  4. VASTEN [Concomitant]
     Indication: DYSLIPIDAEMIA
  5. SOTALEX [Concomitant]
     Dosage: 1 DF, QD
     Route: 048
  6. FERROUS SULFATE TAB [Concomitant]
     Dosage: 1 DF, QD
     Route: 048
  7. ACETAMINOPHEN [Concomitant]
     Dosage: 1 G, TID
     Route: 048
  8. CROMOLYN SODIUM [Concomitant]
     Dosage: 2 DRP, QD
  9. COSOPT [Concomitant]
     Dosage: 2 DRP, QD
  10. DOMPERIDONE [Concomitant]
     Dosage: 10 MG, TID
     Route: 048

REACTIONS (11)
  - CONFUSIONAL STATE [None]
  - DISORIENTATION [None]
  - DYSPNOEA EXERTIONAL [None]
  - ESCHERICHIA INFECTION [None]
  - HYPERTENSION [None]
  - HYPONATRAEMIA [None]
  - INTERVERTEBRAL DISC COMPRESSION [None]
  - NECK PAIN [None]
  - OEDEMA PERIPHERAL [None]
  - OLIGURIA [None]
  - SPINAL OSTEOARTHRITIS [None]
